FAERS Safety Report 9471560 (Version 2)
Quarter: 2014Q1

REPORT INFORMATION
  Report Type: Spontaneous
  Country: US (occurrence: US)
  Receive Date: 20130822
  Receipt Date: 20140116
  Transmission Date: 20141002
  Serious: Yes (Other)
  Sender: FDA-Public Use
  Company Number: PHHY2013US088437

PATIENT
  Age: 37 Year
  Sex: Female

DRUGS (12)
  1. THIAMAZOLE [Suspect]
     Indication: HYPERTHYROIDISM
     Dosage: 10 MG, BID
  2. ATENOLOL [Suspect]
     Dosage: 10 G DAILY
  3. DIPHENHYDRAMINE [Suspect]
  4. HYDROCORTISONE [Suspect]
  5. VANCOMYCIN [Suspect]
  6. CEFEPIME [Suspect]
  7. FILGRASTIM [Suspect]
  8. DEXAMETHASONE [Suspect]
     Indication: HYPERTHYROIDISM
  9. PROPRANOLOL [Suspect]
     Indication: HYPERTHYROIDISM
  10. PROPYLTHIOURACIL [Suspect]
  11. POTASSIUM IODIDE [Suspect]
     Indication: HYPERTHYROIDISM
  12. CHOLESTYRAMINE [Suspect]
     Indication: HYPERTHYROIDISM

REACTIONS (14)
  - Agranulocytosis [Recovered/Resolved]
  - Neutropenia [Recovered/Resolved]
  - Oropharyngeal pain [Unknown]
  - Pyrexia [Unknown]
  - Abortion spontaneous [Unknown]
  - Vaginal haemorrhage [Not Recovered/Not Resolved]
  - Abdominal pain [Not Recovered/Not Resolved]
  - Ecthyma [Unknown]
  - Pruritus generalised [Unknown]
  - Rash pustular [Unknown]
  - Skin lesion [Recovering/Resolving]
  - Staphylococcal skin infection [Unknown]
  - Sepsis [Unknown]
  - Maternal exposure during pregnancy [Unknown]
